FAERS Safety Report 16933594 (Version 1)
Quarter: 2019Q4

REPORT INFORMATION
  Report Type: Spontaneous
  Country: US (occurrence: US)
  Receive Date: 20191018
  Receipt Date: 20191018
  Transmission Date: 20200122
  Serious: No
  Sender: FDA-Public Use
  Company Number: US-VIIV HEALTHCARE LIMITED-US2019AMR186126

PATIENT
  Sex: Female

DRUGS (1)
  1. AZT [Suspect]
     Active Substance: ZIDOVUDINE
     Indication: HIV INFECTION
     Dosage: UNK (EVERY 4 HOURS)
     Route: 065
     Dates: start: 1991

REACTIONS (1)
  - Malaise [Unknown]
